FAERS Safety Report 8433416-7 (Version None)
Quarter: 2012Q2

REPORT INFORMATION
  Report Type: 
  Country: None (occurrence: None)
  Receive Date: 20120613
  Receipt Date: 20120604
  Transmission Date: 20120825
  Serious: Yes (Hospitalization, Other)
  Sender: FDA-Public Use
  Company Number: HR-JNJFOC-20120411293

PATIENT
  Age: 38 Year
  Sex: Male

DRUGS (7)
  1. CLOZAPINE [Suspect]
     Indication: SCHIZOPHRENIA, PARANOID TYPE
     Dosage: 50MG IN THE EVENING
     Route: 065
     Dates: start: 20080801
  2. RISPERIDONE [Suspect]
     Indication: SCHIZOPHRENIA, PARANOID TYPE
     Route: 030
     Dates: start: 20080801
  3. MAPROTILINE HYDROCHLORIDE [Suspect]
     Indication: PRODUCT USED FOR UNKNOWN INDICATION
     Route: 065
  4. DIAZEPAM [Suspect]
     Indication: PSYCHOTIC DISORDER
     Dosage: 0,0,1
     Route: 065
     Dates: start: 20051001
  5. RISPERIDONE [Suspect]
     Indication: PSYCHOTIC DISORDER
     Dosage: 1,0,1
     Route: 048
     Dates: start: 20051001, end: 20080801
  6. RISPERIDONE [Suspect]
     Indication: SCHIZOPHRENIA, PARANOID TYPE
     Dosage: 1,0,1
     Route: 048
     Dates: start: 20051001, end: 20080801
  7. RISPERIDONE [Suspect]
     Route: 030
     Dates: start: 20080501, end: 20080801

REACTIONS (3)
  - PSYCHOTIC DISORDER [None]
  - METABOLIC SYNDROME [None]
  - DELUSION [None]
